FAERS Safety Report 23219449 (Version 11)
Quarter: 2025Q3

REPORT INFORMATION
  Report Type: Spontaneous
  Country: CA (occurrence: CA)
  Receive Date: 20231122
  Receipt Date: 20250724
  Transmission Date: 20251021
  Serious: Yes (Hospitalization, Other)
  Sender: PFIZER
  Company Number: CA-PFIZER INC-202300297551

PATIENT
  Age: 42 Year
  Sex: Male

DRUGS (7)
  1. RUXIENCE [Suspect]
     Active Substance: RITUXIMAB-PVVR
     Indication: Multiple sclerosis
     Route: 042
     Dates: start: 20231116
  2. RUXIENCE [Suspect]
     Active Substance: RITUXIMAB-PVVR
     Route: 042
     Dates: start: 20231129
  3. RUXIENCE [Suspect]
     Active Substance: RITUXIMAB-PVVR
     Route: 042
     Dates: start: 20240529
  4. RUXIENCE [Suspect]
     Active Substance: RITUXIMAB-PVVR
     Route: 042
     Dates: start: 20241129
  5. RUXIENCE [Suspect]
     Active Substance: RITUXIMAB-PVVR
     Route: 042
     Dates: start: 20250529
  6. AMLODINE [AMLODIPINE] [Concomitant]
     Route: 065
     Dates: start: 202308
  7. RAMIPRIL [Concomitant]
     Active Substance: RAMIPRIL
     Route: 065
     Dates: start: 202308

REACTIONS (29)
  - Headache [Not Recovered/Not Resolved]
  - Head discomfort [Not Recovered/Not Resolved]
  - Hypoaesthesia [Not Recovered/Not Resolved]
  - Paraesthesia [Not Recovered/Not Resolved]
  - Dizziness [Not Recovered/Not Resolved]
  - Pharyngeal paraesthesia [Recovering/Resolving]
  - Condition aggravated [Recovered/Resolved]
  - Atrial fibrillation [Not Recovered/Not Resolved]
  - Anxiety [Not Recovered/Not Resolved]
  - Nasal congestion [Recovered/Resolved]
  - Pruritus [Recovered/Resolved]
  - Urticaria [Recovered/Resolved]
  - Contusion [Not Recovered/Not Resolved]
  - Pain in extremity [Unknown]
  - Skin warm [Unknown]
  - Peripheral swelling [Unknown]
  - Diaphragm muscle weakness [Unknown]
  - Hemiparesis [Recovered/Resolved]
  - Monoplegia [Recovered/Resolved]
  - Ear pruritus [Recovered/Resolved]
  - Throat irritation [Recovered/Resolved]
  - Dysarthria [Recovered/Resolved]
  - Speech disorder [Unknown]
  - Hyperventilation [Not Recovered/Not Resolved]
  - Nervousness [Not Recovered/Not Resolved]
  - Infusion related reaction [Unknown]
  - Influenza [Not Recovered/Not Resolved]
  - Somnolence [Recovered/Resolved]
  - Off label use [Unknown]

NARRATIVE: CASE EVENT DATE: 20231101
